FAERS Safety Report 9123768 (Version 1)
Quarter: 2013Q1

REPORT INFORMATION
  Report Type: Report from Study
  Country: NO (occurrence: NO)
  Receive Date: 20130227
  Receipt Date: 20130227
  Transmission Date: 20140127
  Serious: Yes (Life-Threatening)
  Sender: FDA-Public Use
  Company Number: NO-009507513-1302NOR011321

PATIENT
  Age: 65 Year
  Sex: Male
  Weight: 84 kg

DRUGS (15)
  1. EPTIFIBATIDE [Suspect]
     Indication: ACUTE CORONARY SYNDROME
     Dosage: 7.3 ML, UNK
     Route: 040
     Dates: start: 20120229, end: 20120229
  2. EPTIFIBATIDE [Suspect]
     Dosage: 13 UNK, UNK
     Route: 041
     Dates: start: 20120229, end: 20120302
  3. STUDY DRUG (UNSPECIFIED) [Suspect]
     Indication: ACUTE CORONARY SYNDROME
     Dosage: UNK
     Route: 042
     Dates: start: 20120229, end: 20120229
  4. ASPIRIN [Suspect]
     Indication: ACUTE CORONARY SYNDROME
     Dosage: 75 MG, QD
     Route: 048
     Dates: start: 20060916
  5. ASPIRIN [Suspect]
     Dosage: 300 MG, UNK
     Route: 048
     Dates: start: 20120228, end: 20120228
  6. PLAVIX [Suspect]
     Indication: ACUTE CORONARY SYNDROME
     Dosage: 75 MG, QD
     Route: 048
     Dates: start: 20120229
  7. PLAVIX [Suspect]
     Dosage: 300 MG, QD
     Dates: start: 20120228, end: 20120228
  8. LIDOCAINE [Concomitant]
     Dates: start: 20120229, end: 20120229
  9. ATORVASTATIN [Concomitant]
     Dosage: 80 MG, UNK
  10. KLEXANE [Concomitant]
     Dosage: 160 MG, UNK
     Route: 058
     Dates: start: 20120229, end: 20120301
  11. KLEXANE [Concomitant]
     Dosage: 80 MG, UNK
     Route: 058
     Dates: start: 20120228, end: 20120228
  12. VERAPAMIL [Concomitant]
     Dosage: UNK
     Dates: start: 20120229, end: 20120229
  13. STESOLID [Concomitant]
     Dosage: UNK
     Dates: start: 20120229, end: 20120229
  14. SELO-ZOK [Concomitant]
     Dosage: 100 MG, UNK
  15. NITROGLYCERIN [Concomitant]
     Dosage: UNK
     Dates: start: 20120229, end: 20120229

REACTIONS (1)
  - Post procedural haemorrhage [Recovered/Resolved]
